FAERS Safety Report 6863354-2 (Version None)
Quarter: 2010Q3

REPORT INFORMATION
  Report Type: 
  Country: None (occurrence: None)
  Receive Date: 20100721
  Receipt Date: 20100715
  Transmission Date: 20110219
  Serious: Yes (Hospitalization)
  Sender: FDA-Public Use
  Company Number: SE-AMGEN-US314887

PATIENT
  Sex: Female

DRUGS (7)
  1. ENBREL [Suspect]
     Indication: RHEUMATOID ARTHRITIS
     Route: 058
     Dates: start: 20021107
  2. OMEPRAZOLE [Concomitant]
     Route: 048
  3. ISOPTO-PLAIN [Concomitant]
     Dosage: 1 DROP EVERY 1 PRN
  4. TRIATEC [Concomitant]
     Route: 048
  5. ACETAMINOPHEN [Concomitant]
     Dosage: 500 MG EVERY 1 PRN
     Route: 048
  6. CALCICHEW [Concomitant]
     Route: 048
  7. INDOMEE [Concomitant]
     Route: 054

REACTIONS (2)
  - CEREBRAL INFARCTION [None]
  - MYOCARDIAL INFARCTION [None]
